FAERS Safety Report 4342076-6 (Version None)
Quarter: 2004Q2

REPORT INFORMATION
  Report Type: 
  Country: None (occurrence: None)
  Receive Date: 20040420
  Receipt Date: 20040309
  Transmission Date: 20050107
  Serious: Yes (Hospitalization, Disabling)
  Sender: FDA-Public Use
  Company Number: FR-MERCK-0403FRA00039

PATIENT
  Age: 52 Year
  Sex: Male
  Weight: 89 kg

DRUGS (4)
  1. ZOCOR [Suspect]
     Indication: CORONARY ARTERY DISEASE
     Route: 048
     Dates: start: 19960101, end: 20030601
  2. ZOCOR [Suspect]
     Route: 048
     Dates: start: 20030315
  3. ZOCOR [Suspect]
     Indication: HYPERCHOLESTEROLAEMIA
     Route: 048
     Dates: start: 19960101, end: 20030601
  4. ZOCOR [Suspect]
     Route: 048
     Dates: start: 20030315

REACTIONS (4)
  - ANGINA PECTORIS [None]
  - CORONARY ARTERY STENOSIS [None]
  - DISEASE RECURRENCE [None]
  - TENDONITIS [None]
